FAERS Safety Report 5277762-7 (Version None)
Quarter: 2007Q1

REPORT INFORMATION
  Report Type: 
  Country: None (occurrence: None)
  Receive Date: 20070327
  Receipt Date: 20070315
  Transmission Date: 20070707
  Serious: Yes (Life-Threatening, Other)
  Sender: FDA-Public Use
  Company Number: US-PFIZER INC-2005133248

PATIENT
  Sex: Male
  Weight: 112.9 kg

DRUGS (25)
  1. NEURONTIN [Suspect]
     Indication: MIGRAINE
     Dates: start: 19980608, end: 20030619
  2. NEURONTIN [Suspect]
     Indication: MOVEMENT DISORDER
  3. NEURONTIN [Suspect]
     Indication: RESTLESS LEGS SYNDROME
  4. CLONAZEPAM [Concomitant]
  5. ELAVIL [Concomitant]
  6. PRILOSEC [Concomitant]
  7. PROZAC [Concomitant]
     Indication: PARAESTHESIA
  8. PROMETHAZINE [Concomitant]
     Dates: start: 20000301
  9. NORFLEX [Concomitant]
     Dates: start: 19991112
  10. SOMA [Concomitant]
  11. AMITRIPTYLINE HCL [Concomitant]
     Dates: start: 20010410, end: 20031208
  12. CYMBALTA [Concomitant]
  13. KLONOPIN [Concomitant]
     Indication: MUSCLE SPASMS
     Dates: start: 19980526, end: 20010924
  14. FELDENE [Concomitant]
  15. RESTORIL [Concomitant]
     Indication: INSOMNIA
     Dosage: FREQ:AS NECESSARY
  16. DURACT [Concomitant]
  17. ULTRAM [Concomitant]
     Dates: start: 19970728, end: 20010924
  18. CELEBREX [Concomitant]
     Dates: start: 20000219, end: 20010924
  19. VICODIN [Concomitant]
  20. AMBIEN [Concomitant]
     Dates: start: 20001206, end: 20010924
  21. EFFEXOR XR [Concomitant]
     Dates: start: 20010131, end: 20030116
  22. SONATA [Concomitant]
     Dates: start: 20001108
  23. ZANAFLEX [Concomitant]
  24. PARAFON [Concomitant]
  25. BACLOFEN [Concomitant]

REACTIONS (8)
  - ALCOHOL POISONING [None]
  - ALCOHOLISM [None]
  - ASPIRATION [None]
  - DEPRESSION [None]
  - DRUG INEFFECTIVE [None]
  - INTENTIONAL OVERDOSE [None]
  - SUICIDAL IDEATION [None]
  - SUICIDE ATTEMPT [None]
